FAERS Safety Report 7369438-7 (Version None)
Quarter: 2011Q1

REPORT INFORMATION
  Report Type: 
  Country: None (occurrence: None)
  Receive Date: 20110323
  Receipt Date: 20110310
  Transmission Date: 20110831
  Serious: Yes (Other)
  Sender: FDA-Public Use
  Company Number: US-AMGEN-USASP2011013539

PATIENT

DRUGS (2)
  1. ENBREL [Suspect]
     Indication: PSORIASIS
  2. ENBREL [Suspect]
     Indication: PSORIATIC ARTHROPATHY
     Dosage: UNK
     Dates: end: 20101001

REACTIONS (5)
  - CONFUSIONAL STATE [None]
  - APHASIA [None]
  - INFECTION [None]
  - VIITH NERVE PARALYSIS [None]
  - HYPOAESTHESIA [None]
